FAERS Safety Report 7436131-1 (Version None)
Quarter: 2011Q2

REPORT INFORMATION
  Report Type: 
  Country: None (occurrence: None)
  Receive Date: 20110425
  Receipt Date: 20110307
  Transmission Date: 20111010
  Serious: Yes (Hospitalization, Other)
  Sender: FDA-Public Use
  Company Number: US-GENENTECH-315058

PATIENT

DRUGS (16)
  1. VINCRISTINE [Suspect]
     Dosage: ON DAY 1
     Route: 064
  2. DOXORUBICIN [Suspect]
     Route: 064
  3. DOXORUBICIN [Suspect]
     Indication: BURKITT'S LYMPHOMA
     Dosage: 40 MG/M2, UNK
     Route: 064
  4. PREDNISONE [Suspect]
     Indication: BURKITT'S LYMPHOMA
     Dosage: 100 MG, UNK
     Route: 064
  5. PREDNISONE [Suspect]
     Dosage: ON DAYS 1 THROUGH 5
     Route: 064
  6. CYTARABINE [Suspect]
     Indication: BURKITT'S LYMPHOMA
     Dosage: 70 MG, UNK
     Route: 064
  7. ETOPOSIDE [Suspect]
     Indication: BURKITT'S LYMPHOMA
     Dosage: UNK
     Route: 064
  8. CYCLOPHOSPHAMIDE [Suspect]
     Dosage: ON DAY 1, AND ON DAYS 2 THROUGH 5: 200 MG/M2
     Route: 064
  9. CYTARABINE [Suspect]
     Route: 064
  10. RITUXIMAB [Suspect]
     Dosage: ON DAYS 13, 18, 39, 42, 59, 62, AND 89
     Route: 064
  11. IFOSFAMIDE [Suspect]
     Indication: BURKITT'S LYMPHOMA
     Dosage: UNK
     Route: 064
  12. RITUXIMAB [Suspect]
     Indication: BURKITT'S LYMPHOMA
     Dosage: 375 MG/M2, UNK
     Route: 064
  13. FILGRASTIM [Suspect]
     Indication: FEBRILE NEUTROPENIA
     Dosage: UNK
     Route: 062
  14. CYCLOPHOSPHAMIDE [Suspect]
     Indication: BURKITT'S LYMPHOMA
     Dosage: 800 MG/M2, UNK
     Route: 064
  15. VINCRISTINE [Suspect]
     Indication: BURKITT'S LYMPHOMA
     Dosage: 2 MG, UNK
     Route: 064
  16. MESNA [Suspect]
     Indication: BURKITT'S LYMPHOMA
     Dosage: UNK
     Route: 064

REACTIONS (2)
  - STILLBIRTH [None]
  - FOETAL GROWTH RESTRICTION [None]
